FAERS Safety Report 9816247 (Version 2)
Quarter: 2014Q1

REPORT INFORMATION
  Report Type: Report from Study
  Country: US (occurrence: US)
  Receive Date: 20140114
  Receipt Date: 20140120
  Transmission Date: 20141002
  Serious: Yes (Death, Hospitalization)
  Sender: FDA-Public Use
  Company Number: US-ACTELION-A-NJ2014-93269

PATIENT
  Age: 52 Year
  Sex: Female

DRUGS (3)
  1. MACITENTAN [Suspect]
     Indication: PULMONARY ARTERIAL HYPERTENSION
     Dosage: 10 MG, QD
     Route: 048
     Dates: end: 20131224
  2. SINGULAIR [Concomitant]
  3. SYMBICORT [Concomitant]

REACTIONS (3)
  - Death [Fatal]
  - Diarrhoea [Unknown]
  - Abdominal pain upper [Unknown]
